FAERS Safety Report 23076355 (Version 2)
Quarter: 2023Q4

REPORT INFORMATION
  Report Type: Spontaneous
  Country: JP (occurrence: JP)
  Receive Date: 20231017
  Receipt Date: 20231103
  Transmission Date: 20240110
  Serious: Yes (Other)
  Sender: FDA-Public Use
  Company Number: PA2023JP000115

PATIENT
  Age: 75 Year
  Sex: Male

DRUGS (4)
  1. REMIMAZOLAM [Suspect]
     Active Substance: REMIMAZOLAM
     Indication: General anaesthesia
     Dosage: UNK
     Route: 042
  2. REMIFENTANIL HYDROCHLORIDE [Suspect]
     Active Substance: REMIFENTANIL HYDROCHLORIDE
     Indication: Induction of anaesthesia
     Dosage: UNK
     Route: 042
  3. ROCURONIUM BROMIDE [Suspect]
     Active Substance: ROCURONIUM BROMIDE
     Indication: Induction of anaesthesia
     Dosage: UNK
     Route: 042
  4. DOBUTAMINE HYDROCHLORIDE [Concomitant]
     Active Substance: DOBUTAMINE HYDROCHLORIDE
     Indication: Product used for unknown indication
     Dosage: UNK
     Route: 065

REACTIONS (3)
  - Pulseless electrical activity [Recovering/Resolving]
  - Central venous pressure increased [Recovering/Resolving]
  - Blood pressure systolic decreased [Recovering/Resolving]
